FAERS Safety Report 20037844 (Version 1)
Quarter: 2021Q4

REPORT INFORMATION
  Report Type: Report from Study
  Country: US (occurrence: US)
  Receive Date: 20211105
  Receipt Date: 20211105
  Transmission Date: 20220303
  Serious: Yes (Death, Hospitalization, Other)
  Sender: FDA-Public Use
  Company Number: US-AUROBINDO-AUR-APL-2021-045493

PATIENT
  Age: 68 Year
  Sex: Male
  Weight: 92 kg

DRUGS (6)
  1. BELINOSTAT [Suspect]
     Active Substance: BELINOSTAT
     Indication: Breast cancer
     Dosage: 500 MILLIGRAM, ONCE A DAY
     Route: 048
     Dates: start: 20210607, end: 20210712
  2. BELINOSTAT [Suspect]
     Active Substance: BELINOSTAT
     Indication: Prostate cancer
  3. BELINOSTAT [Suspect]
     Active Substance: BELINOSTAT
     Indication: Ovarian cancer
  4. TALAZOPARIB [Suspect]
     Active Substance: TALAZOPARIB
     Indication: Breast cancer
     Dosage: 1 MILLIGRAM, ONCE A DAY
     Route: 048
     Dates: start: 20210607, end: 20210712
  5. TALAZOPARIB [Suspect]
     Active Substance: TALAZOPARIB
     Indication: Prostate cancer
  6. MIDODRINE HYDROCHLORIDE [Concomitant]
     Active Substance: MIDODRINE HYDROCHLORIDE
     Indication: Neuroendocrine carcinoma
     Dosage: 5 MILLIGRAM
     Route: 048
     Dates: start: 20210717

REACTIONS (2)
  - Disease progression [Fatal]
  - Hepatic pain [Recovered/Resolved]

NARRATIVE: CASE EVENT DATE: 20210716
